FAERS Safety Report 16125636 (Version 1)
Quarter: 2019Q1

REPORT INFORMATION
  Report Type: Spontaneous
  Country: US (occurrence: US)
  Receive Date: 20190328
  Receipt Date: 20190328
  Transmission Date: 20190418
  Serious: No
  Sender: FDA-Public Use
  Company Number: US-TEVA-2019-US-1031251

PATIENT
  Sex: Female

DRUGS (2)
  1. PROGESTERONE AKORN [Suspect]
     Active Substance: PROGESTERONE
     Dosage: 200 MILLIGRAM DAILY; ONGOING, AT NIGHT
     Route: 048
     Dates: start: 201808
  2. ESTRADIOL TEVA [Suspect]
     Active Substance: ESTRADIOL
     Dosage: 1 MILLIGRAM DAILY; ONGOING, AT NIGHT
     Route: 048
     Dates: start: 201808

REACTIONS (3)
  - Breast discomfort [Unknown]
  - Hot flush [Unknown]
  - Breast swelling [Unknown]
